FAERS Safety Report 8422380-2 (Version None)
Quarter: 2012Q2

REPORT INFORMATION
  Report Type: 
  Country: None (occurrence: None)
  Receive Date: 20120604
  Receipt Date: 20120523
  Transmission Date: 20120825
  Serious: Yes (Hospitalization)
  Sender: FDA-Public Use
  Company Number: B0805016A

PATIENT
  Age: 58 Year
  Sex: Male

DRUGS (7)
  1. METHIMAZOLE [Concomitant]
  2. ME-PREDNISOLONE NA SUCC. [Concomitant]
  3. SILDENAFIL CITRATE [Concomitant]
  4. BOSENTAN [Concomitant]
  5. EPOPROSTENOL SODIUM [Suspect]
     Indication: PULMONARY HYPERTENSION
     Dosage: 51 NG/KG
  6. CHOLESTYRAMINE [Concomitant]
  7. CARVEDILOL [Concomitant]

REACTIONS (5)
  - BASEDOW'S DISEASE [None]
  - BRADYCARDIA [None]
  - CONDITION AGGRAVATED [None]
  - HYPOTENSION [None]
  - PYREXIA [None]
